FAERS Safety Report 14524685 (Version 2)
Quarter: 2018Q1

REPORT INFORMATION
  Report Type: Report from Study
  Country: US (occurrence: US)
  Receive Date: 20180213
  Receipt Date: 20180226
  Transmission Date: 20180509
  Serious: Yes (Other)
  Sender: FDA-Public Use
  Company Number: PHEH2018US004353

PATIENT
  Sex: Female

DRUGS (1)
  1. COSENTYX [Suspect]
     Active Substance: SECUKINUMAB
     Indication: PSORIASIS
     Dosage: 150 MG, ONCE IN 2 WEEKS
     Route: 058

REACTIONS (5)
  - Inappropriate schedule of drug administration [Unknown]
  - Dyspnoea [Unknown]
  - Blood urine [Unknown]
  - Atrial fibrillation [Unknown]
  - Cardiac disorder [Unknown]
